FAERS Safety Report 7983524-X (Version None)
Quarter: 2011Q4

REPORT INFORMATION
  Report Type: 
  Country: None (occurrence: None)
  Receive Date: 20111215
  Receipt Date: 20111209
  Transmission Date: 20120403
  Serious: No
  Sender: FDA-Public Use
  Company Number: US-B.I. PHARMACEUTICALS,INC./RIDGEFIELD-2011-BP-27832BP

PATIENT
  Sex: Female

DRUGS (20)
  1. MUCINEX [Concomitant]
     Indication: COUGH
     Dosage: 1800 MG
     Route: 048
     Dates: start: 20100101
  2. MUCINEX [Concomitant]
     Indication: PULMONARY CONGESTION
  3. SINGULAIR [Concomitant]
     Indication: CHRONIC OBSTRUCTIVE PULMONARY DISEASE
  4. COUMADIN [Concomitant]
     Indication: HEART VALVE REPLACEMENT
     Dosage: 5 MG
     Route: 048
     Dates: start: 20050101
  5. CRESTOR [Concomitant]
     Indication: HYPERCHOLESTEROLAEMIA
     Dosage: 5 MG
     Route: 048
     Dates: start: 20070101
  6. DILTIAZEM HCL [Concomitant]
     Indication: CARDIAC VALVE DISEASE
     Dosage: 120 MG
     Route: 048
     Dates: start: 20100101
  7. DUONEB [Concomitant]
     Indication: DYSPNOEA
     Route: 055
     Dates: start: 20070101
  8. SYMBICORT [Concomitant]
     Indication: CHRONIC OBSTRUCTIVE PULMONARY DISEASE
  9. PREDNISONE TAB [Concomitant]
     Indication: INFLAMMATION
     Dosage: 5 MG
     Route: 048
     Dates: start: 20100101
  10. SYNTHROID [Concomitant]
     Indication: HYPOTHYROIDISM
     Dosage: 50 MCG
     Route: 048
     Dates: start: 19910101
  11. ZOLOFT [Concomitant]
     Indication: ANXIETY
     Dosage: 50 MG
     Route: 048
     Dates: start: 20070101
  12. TOPROL-XL [Concomitant]
     Indication: CARDIAC DISORDER
     Dosage: 150 MG
     Route: 048
     Dates: start: 20100101
  13. SINGULAIR [Concomitant]
     Indication: ASTHMA
     Dosage: 10 MG
     Route: 048
  14. CENTRUM [Concomitant]
     Indication: SUPPLEMENTATION THERAPY
     Route: 048
     Dates: start: 20100101
  15. SYMBICORT [Concomitant]
     Indication: ASTHMA
     Route: 048
  16. SPIRIVA [Suspect]
     Indication: CHRONIC OBSTRUCTIVE PULMONARY DISEASE
     Dosage: 18 MCG
     Route: 055
  17. CALCIUM [Concomitant]
     Indication: SUPPLEMENTATION THERAPY
     Dosage: 1260 MG
     Route: 048
     Dates: start: 20100101
  18. LASIX [Concomitant]
     Indication: CARDIAC FAILURE CONGESTIVE
     Dosage: 40 MG
     Route: 048
     Dates: start: 20090101
  19. POTASSIUM CHLORIDE [Concomitant]
     Indication: SUPPLEMENTATION THERAPY
     Dosage: 20 MG
     Route: 048
     Dates: start: 20090101
  20. VITAMIN D [Concomitant]
     Indication: SUPPLEMENTATION THERAPY
     Route: 048
     Dates: start: 20070101

REACTIONS (2)
  - WHEEZING [None]
  - CHEST DISCOMFORT [None]
